FAERS Safety Report 18036062 (Version 12)
Quarter: 2023Q4

REPORT INFORMATION
  Report Type: Other
  Country: US (occurrence: US)
  Receive Date: 20200717
  Receipt Date: 20231128
  Transmission Date: 20240110
  Serious: Yes (Hospitalization, Other)
  Sender: FDA-Public Use
  Company Number: US-ROCHE-2624045

PATIENT
  Age: 80 Year
  Sex: Male
  Weight: 73.548 kg

DRUGS (16)
  1. PULMOZYME [Suspect]
     Active Substance: DORNASE ALFA
     Indication: Chronic obstructive pulmonary disease
     Dosage: NEBULIZER
     Route: 055
     Dates: start: 2016
  2. PULMOZYME [Suspect]
     Active Substance: DORNASE ALFA
     Indication: Infective exacerbation of chronic obstructive airways disease
     Dosage: ONGOING:YES
     Route: 055
     Dates: start: 20200626
  3. PULMOZYME [Suspect]
     Active Substance: DORNASE ALFA
     Indication: Pneumonia pseudomonal
     Dosage: NEBULIZE THE CONTENTS OF 1 VIAL(S) 2.5MG EVERY DAY, AMPULE
     Route: 055
  4. PULMOZYME [Suspect]
     Active Substance: DORNASE ALFA
     Indication: Chronic obstructive pulmonary disease
     Dosage: NEBULIZE THE CONTENTS OF 1 VIAL(S) 2.5MG EVERY DAY
     Route: 055
  5. PULMOZYME [Suspect]
     Active Substance: DORNASE ALFA
     Indication: Chronic respiratory failure
     Route: 055
  6. PULMOZYME [Suspect]
     Active Substance: DORNASE ALFA
     Indication: Hypoxia
  7. PULMOZYME [Suspect]
     Active Substance: DORNASE ALFA
     Indication: Cough
  8. PULMOZYME [Suspect]
     Active Substance: DORNASE ALFA
     Indication: Dyspnoea
  9. PULMOZYME [Suspect]
     Active Substance: DORNASE ALFA
     Indication: Pneumonia pseudomonal
  10. CEFEPIME HYDROCHLORIDE [Suspect]
     Active Substance: CEFEPIME HYDROCHLORIDE
     Indication: Pseudomonas infection
     Route: 065
  11. DOXYCYCLINE [Concomitant]
     Active Substance: DOXYCYCLINE
     Dates: start: 2020
  12. MUCINEX [Concomitant]
     Active Substance: GUAIFENESIN
     Route: 048
  13. HYDROCHLOROTHIAZIDE\TRIAMTERENE [Concomitant]
     Active Substance: HYDROCHLOROTHIAZIDE\TRIAMTERENE
     Dosage: ONGOING: YES; 37.5-25 MG DAILY
     Route: 048
  14. SYMBICORT [Concomitant]
     Active Substance: BUDESONIDE\FORMOTEROL FUMARATE DIHYDRATE
     Indication: Chronic obstructive pulmonary disease
  15. SPIRIVA RESPIMAT [Concomitant]
     Active Substance: TIOTROPIUM BROMIDE
     Indication: Chronic obstructive pulmonary disease
     Dosage: ONGOING : YES
  16. METHYLPREDNISOLONE [Concomitant]
     Active Substance: METHYLPREDNISOLONE
     Indication: Chronic obstructive pulmonary disease
     Dosage: ONGOING : YES

REACTIONS (15)
  - Pneumonia pseudomonal [Unknown]
  - Increased viscosity of upper respiratory secretion [Not Recovered/Not Resolved]
  - Dyspnoea [Not Recovered/Not Resolved]
  - Productive cough [Not Recovered/Not Resolved]
  - Off label use [Unknown]
  - Cough [Not Recovered/Not Resolved]
  - Fear [Recovered/Resolved]
  - Middle insomnia [Recovered/Resolved]
  - Sputum abnormal [Not Recovered/Not Resolved]
  - Pneumonia [Unknown]
  - Dysstasia [Unknown]
  - Pneumonia fungal [Unknown]
  - Bacterial infection [Not Recovered/Not Resolved]
  - Fungal infection [Not Recovered/Not Resolved]
  - Increased viscosity of upper respiratory secretion [Unknown]

NARRATIVE: CASE EVENT DATE: 20200101
